FAERS Safety Report 14111056 (Version 1)
Quarter: 2017Q4

REPORT INFORMATION
  Report Type: Spontaneous
  Country: DE (occurrence: DE)
  Receive Date: 20171020
  Receipt Date: 20171020
  Transmission Date: 20180321
  Serious: Yes (Other)
  Sender: FDA-Public Use
  Company Number: PHHY2017DE153230

PATIENT
  Age: 59 Year
  Sex: Female

DRUGS (1)
  1. VITALUX PLUS [Suspect]
     Active Substance: VITAMINS
     Indication: DRY AGE-RELATED MACULAR DEGENERATION
     Dosage: UNK
     Route: 048
     Dates: start: 2014

REACTIONS (1)
  - Retinal tear [Unknown]
